FAERS Safety Report 9342329 (Version 2)
Quarter: 2013Q2

REPORT INFORMATION
  Report Type: Spontaneous
  Country: NO (occurrence: NO)
  Receive Date: 20130611
  Receipt Date: 20130620
  Transmission Date: 20140414
  Serious: Yes (Hospitalization)
  Sender: FDA-Public Use
  Company Number: NO-JNJFOC-20130602157

PATIENT
  Age: 52 Year
  Sex: Female

DRUGS (7)
  1. SIMPONI [Suspect]
     Indication: PSORIATIC ARTHROPATHY
     Route: 058
     Dates: start: 20130526
  2. DILTIAZEM [Concomitant]
     Route: 065
  3. PRESTARIUM [Concomitant]
     Route: 065
  4. SIRDALUD [Concomitant]
     Route: 065
  5. TAVEGYL [Concomitant]
     Route: 065
  6. RANITIDIN [Concomitant]
     Route: 065
  7. ARCOXIA [Concomitant]
     Route: 065

REACTIONS (1)
  - Cerebral infarction [Unknown]
